FAERS Safety Report 12376066 (Version 1)
Quarter: 2016Q2

REPORT INFORMATION
  Report Type: Spontaneous
  Country: US (occurrence: None)
  Receive Date: 20160516
  Receipt Date: 20160516
  Transmission Date: 20160815
  Serious: Yes (Hospitalization)
  Sender: FDA-Public Use
  Company Number: None

PATIENT
  Age: 60 Year
  Sex: Female
  Weight: 61.1 kg

DRUGS (1)
  1. METHIMAZOLE. [Suspect]
     Active Substance: METHIMAZOLE
     Indication: HYPERTHYROIDISM
     Route: 048
     Dates: start: 20150818, end: 20151204

REACTIONS (6)
  - Blood alkaline phosphatase increased [None]
  - Toxicity to various agents [None]
  - Basedow^s disease [None]
  - Aspartate aminotransferase increased [None]
  - Treatment noncompliance [None]
  - Alanine aminotransferase increased [None]

NARRATIVE: CASE EVENT DATE: 20151204
